FAERS Safety Report 9297418 (Version 1)
Quarter: 2013Q2

REPORT INFORMATION
  Report Type: Spontaneous
  Country: US (occurrence: None)
  Receive Date: 20130517
  Receipt Date: 20130517
  Transmission Date: 20140414
  Serious: Yes (Hospitalization)
  Sender: FDA-Public Use
  Company Number: None

PATIENT
  Age: 65 Year
  Sex: Male

DRUGS (1)
  1. STIVARGA [Suspect]
     Indication: HEPATOCELLULAR CARCINOMA
     Route: 048
     Dates: start: 20130212, end: 20130502

REACTIONS (7)
  - Blister [None]
  - Skin exfoliation [None]
  - Malignant neoplasm progression [None]
  - Swelling [None]
  - Local swelling [None]
  - Abasia [None]
  - Dysstasia [None]
